FAERS Safety Report 7758819-5 (Version None)
Quarter: 2011Q3

REPORT INFORMATION
  Report Type: 
  Country: None (occurrence: None)
  Receive Date: 20110916
  Receipt Date: 20110916
  Transmission Date: 20111222
  Serious: Yes (Other)
  Sender: FDA-Public Use
  Company Number: None

PATIENT
  Age: 66 Year
  Sex: Female

DRUGS (5)
  1. DEXAMETHASONE [Concomitant]
  2. REVLIMID [Suspect]
     Indication: MULTIPLE MYELOMA
     Dosage: REVLIMID 25 MG DAILY X21D/28D ORALLY
     Route: 048
     Dates: start: 20110401
  3. NORMODYNE [Concomitant]
  4. ASPIRIN [Concomitant]
  5. PREGABALIN [Concomitant]

REACTIONS (1)
  - FULL BLOOD COUNT ABNORMAL [None]
